FAERS Safety Report 8221801-8 (Version None)
Quarter: 2012Q1

REPORT INFORMATION
  Report Type: 
  Country: None (occurrence: None)
  Receive Date: 20120320
  Receipt Date: 20120314
  Transmission Date: 20120608
  Serious: Yes (Death, Life-Threatening)
  Sender: FDA-Public Use
  Company Number: JP-BAYER-201013668BYL

PATIENT
  Age: 68 Year
  Sex: Male
  Weight: 65 kg

DRUGS (12)
  1. MS CONTIN [Concomitant]
     Dosage: 60 MG (DAILY DOSE), , ORAL
     Route: 048
  2. NEXAVAR [Suspect]
     Indication: HEPATIC NEOPLASM MALIGNANT
     Route: 048
     Dates: start: 20100705, end: 20100713
  3. AMINOVACT [Concomitant]
     Dosage: 14.22 G (DAILY DOSE), , ORAL
     Route: 048
     Dates: start: 20090601
  4. LANSOPRAZOLE [Concomitant]
     Dosage: 15 MG (DAILY DOSE), , ORAL
     Route: 048
     Dates: start: 20090601
  5. MAGMITT [Concomitant]
     Dosage: 1000 MG (DAILY DOSE), , ORAL
     Route: 048
     Dates: start: 20090601
  6. NEXAVAR [Suspect]
     Dosage: 400 MG, QOD
     Route: 048
     Dates: start: 20100726, end: 20100904
  7. NEXAVAR [Suspect]
     Route: 048
     Dates: start: 20100720
  8. BETAMETHASONE [Suspect]
     Dosage: DAILY DOSE .5 DF
     Route: 048
     Dates: start: 20100802, end: 20100904
  9. RHYTHMY [Concomitant]
     Dosage: 2 MG (DAILY DOSE), , ORAL
     Route: 048
     Dates: start: 20090601
  10. MORPHINE [Concomitant]
     Route: 048
  11. URSO 250 [Concomitant]
     Dosage: 300 MG (DAILY DOSE), , ORAL
     Route: 048
     Dates: start: 20090601
  12. VOLTAREN [Concomitant]
     Dosage: 75 MG (DAILY DOSE), , ORAL
     Route: 048
     Dates: start: 20090601

REACTIONS (9)
  - DISSEMINATED INTRAVASCULAR COAGULATION [None]
  - ANAL HAEMORRHAGE [None]
  - SHOCK [None]
  - CREPITATIONS [None]
  - COUGH [None]
  - DIARRHOEA [None]
  - INTERSTITIAL LUNG DISEASE [None]
  - PYREXIA [None]
  - PALMAR-PLANTAR ERYTHRODYSAESTHESIA SYNDROME [None]
